FAERS Safety Report 12230949 (Version 1)
Quarter: 2016Q2

REPORT INFORMATION
  Report Type: Spontaneous
  Country: US (occurrence: US)
  Receive Date: 20160401
  Receipt Date: 20160401
  Transmission Date: 20160815
  Serious: No
  Sender: FDA-Public Use
  Company Number: US-009507513-1603USA006371

PATIENT

DRUGS (2)
  1. BELSOMRA [Suspect]
     Active Substance: SUVOREXANT
     Route: 048
  2. XANAX [Concomitant]
     Active Substance: ALPRAZOLAM

REACTIONS (1)
  - Anxiety [Unknown]
